FAERS Safety Report 20181650 (Version 1)
Quarter: 2021Q4

REPORT INFORMATION
  Report Type: Spontaneous
  Country: US (occurrence: None)
  Receive Date: 20211213
  Receipt Date: 20211213
  Transmission Date: 20220303
  Serious: No
  Sender: FDA-Public Use
  Company Number: None

PATIENT
  Age: 47 Year
  Sex: Female
  Weight: 72.57 kg

DRUGS (4)
  1. GAMMAGARD [Suspect]
     Active Substance: HUMAN IMMUNOGLOBULIN G
  2. SOLU-Medrol 10MG [Concomitant]
  3. Acetaminophen Oral [Concomitant]
  4. LORATADINE [Concomitant]
     Active Substance: LORATADINE

REACTIONS (3)
  - Head discomfort [None]
  - Spinal disorder [None]
  - Discomfort [None]

NARRATIVE: CASE EVENT DATE: 20211126
